FAERS Safety Report 24981979 (Version 1)
Quarter: 2025Q1

REPORT INFORMATION
  Report Type: Spontaneous
  Country: US (occurrence: US)
  Receive Date: 20250218
  Receipt Date: 20250218
  Transmission Date: 20250409
  Serious: Yes (Other)
  Sender: PINE PHARMACEUTICALS - COMPOUNDING
  Company Number: US-Pine Pharmaceuticals, LLC-2171291

PATIENT
  Age: 93 Year
  Sex: Male

DRUGS (1)
  1. BEVACIZUMAB [Suspect]
     Active Substance: BEVACIZUMAB
     Indication: Neovascular age-related macular degeneration
     Dates: start: 20250212

REACTIONS (1)
  - Endophthalmitis [Unknown]
